FAERS Safety Report 6690613-9 (Version None)
Quarter: 2010Q2

REPORT INFORMATION
  Report Type: 
  Country: None (occurrence: None)
  Receive Date: 20100421
  Receipt Date: 20100416
  Transmission Date: 20101027
  Serious: Yes (Hospitalization)
  Sender: FDA-Public Use
  Company Number: Z0003901A

PATIENT
  Sex: Female
  Weight: 68.5 kg

DRUGS (3)
  1. PAZOPANIB [Suspect]
     Dosage: 800MG PER DAY
     Route: 048
     Dates: start: 20100330
  2. CIPROFLOXACIN [Concomitant]
     Indication: URINARY TRACT INFECTION
     Route: 048
     Dates: start: 20100402, end: 20100408
  3. SOLIFENACIN SUCCINATE [Concomitant]
     Indication: URINARY INCONTINENCE
     Dosage: 10MG PER DAY
     Route: 048
     Dates: start: 20100402, end: 20100406

REACTIONS (1)
  - ERYTHEMA MULTIFORME [None]
